FAERS Safety Report 13689091 (Version 2)
Quarter: 2017Q3

REPORT INFORMATION
  Report Type: Spontaneous
  Country: US (occurrence: US)
  Receive Date: 20170626
  Receipt Date: 20170822
  Transmission Date: 20171127
  Serious: No
  Sender: FDA-Public Use
  Company Number: US-TEVA-782148USA

PATIENT
  Age: 30 Year
  Sex: Female
  Weight: 136.2 kg

DRUGS (6)
  1. HYDROCODONE BITARTRATE AND ACETAMINOPHEN [Concomitant]
     Active Substance: ACETAMINOPHEN\HYDROCODONE BITARTRATE
  2. PROAIR HFA [Suspect]
     Active Substance: ALBUTEROL SULFATE
     Indication: ASTHMA
     Route: 065
  3. PROAIR HFA [Suspect]
     Active Substance: ALBUTEROL SULFATE
     Indication: PULMONARY EMBOLISM
  4. XARELTO [Concomitant]
     Active Substance: RIVAROXABAN
  5. ADVAIR DISKUS [Concomitant]
     Active Substance: FLUTICASONE PROPIONATE\SALMETEROL XINAFOATE
  6. PREDNISONE. [Concomitant]
     Active Substance: PREDNISONE

REACTIONS (4)
  - Urine analysis abnormal [Unknown]
  - Substance use [Unknown]
  - Abnormal behaviour [Unknown]
  - Crying [Not Recovered/Not Resolved]

NARRATIVE: CASE EVENT DATE: 20170609
